FAERS Safety Report 7386400-9 (Version None)
Quarter: 2011Q1

REPORT INFORMATION
  Report Type: 
  Country: None (occurrence: None)
  Receive Date: 20110331
  Receipt Date: 20110317
  Transmission Date: 20110831
  Serious: Yes (Other)
  Sender: FDA-Public Use
  Company Number: PHHY2011US22451

PATIENT
  Sex: Female

DRUGS (5)
  1. MULTIVITAMIN [Concomitant]
  2. FLONASE [Concomitant]
  3. LUPRON [Suspect]
     Indication: ENDOMETRIOSIS
  4. VIVELLE-DOT [Suspect]
     Dosage: 0.1 MG, BIW
     Route: 062
  5. FLAXSEED OIL [Concomitant]

REACTIONS (2)
  - CLAVICLE FRACTURE [None]
  - OSTEOPOROSIS [None]
